FAERS Safety Report 16625446 (Version 12)
Quarter: 2021Q1

REPORT INFORMATION
  Report Type: Spontaneous
  Country: US (occurrence: US)
  Receive Date: 20190724
  Receipt Date: 20210324
  Transmission Date: 20210419
  Serious: Yes (Hospitalization, Other)
  Sender: FDA-Public Use
  Company Number: US-PFIZER INC-2019264545

PATIENT
  Age: 95 Year
  Sex: Female

DRUGS (2)
  1. XELJANZ XR [Suspect]
     Active Substance: TOFACITINIB CITRATE
     Indication: RHEUMATOID ARTHRITIS
     Dosage: 11 MG, UNK
  2. XELJANZ XR [Suspect]
     Active Substance: TOFACITINIB CITRATE
     Indication: POLYMYALGIA RHEUMATICA

REACTIONS (10)
  - Condition aggravated [Unknown]
  - Drug ineffective [Unknown]
  - Myocardial infarction [Unknown]
  - Fatigue [Unknown]
  - Macular degeneration [Unknown]
  - Stress [Unknown]
  - Visual impairment [Unknown]
  - Loss of personal independence in daily activities [Unknown]
  - Musculoskeletal disorder [Unknown]
  - Hip fracture [Unknown]
